FAERS Safety Report 6901090-4 (Version None)
Quarter: 2010Q3

REPORT INFORMATION
  Report Type: 
  Country: None (occurrence: None)
  Receive Date: 20100803
  Receipt Date: 20100722
  Transmission Date: 20110219
  Serious: Yes (Other)
  Sender: FDA-Public Use
  Company Number: US-PFIZER INC-2010092404

PATIENT
  Sex: Female
  Weight: 65.76 kg

DRUGS (4)
  1. LYRICA [Suspect]
     Indication: TRIGEMINAL NEURALGIA
     Dosage: 25 MG, 3X/DAY
     Dates: start: 20100101
  2. LYRICA [Suspect]
     Dosage: 75 MG, 3X/DAY
     Route: 048
  3. NEURONTIN [Suspect]
     Indication: TRIGEMINAL NEURALGIA
     Dosage: 400 MG, 3X/DAY
     Route: 048
     Dates: end: 20100101
  4. BACLOFEN [Concomitant]
     Indication: PAIN
     Dosage: 5 MG, 3X/DAY
     Route: 048

REACTIONS (9)
  - ABNORMAL DREAMS [None]
  - ACTIVITIES OF DAILY LIVING IMPAIRED [None]
  - ARTHRALGIA [None]
  - DIZZINESS [None]
  - DRUG INEFFECTIVE [None]
  - MYALGIA [None]
  - NIGHTMARE [None]
  - PAIN IN EXTREMITY [None]
  - SOMNOLENCE [None]
